FAERS Safety Report 9992236 (Version 2)
Quarter: 2014Q2

REPORT INFORMATION
  Report Type: Spontaneous
  Country: US (occurrence: US)
  Receive Date: 20140310
  Receipt Date: 20140404
  Transmission Date: 20141212
  Serious: Yes (Disabling, Other)
  Sender: FDA-Public Use
  Company Number: US-ASTELLAS-2014US001938

PATIENT
  Age: 85 Year
  Sex: Male

DRUGS (14)
  1. XTANDI [Suspect]
     Indication: PROSTATE CANCER METASTATIC
     Dosage: 160 MG, UID/QD
     Dates: start: 20131213
  2. XTANDI [Suspect]
     Dosage: 80 MG, UID/QD
     Dates: end: 20140205
  3. CITRACAL                           /00751520/ [Concomitant]
     Indication: PRODUCT USED FOR UNKNOWN INDICATION
     Dosage: 1 DF, BID
     Route: 065
  4. REFRESH TEARS [Concomitant]
     Indication: PRODUCT USED FOR UNKNOWN INDICATION
     Dosage: UNK
     Route: 065
  5. VALIUM                             /00017001/ [Concomitant]
     Indication: PRODUCT USED FOR UNKNOWN INDICATION
     Dosage: 5 MG, QHS
     Route: 065
  6. COLACE [Concomitant]
     Indication: PRODUCT USED FOR UNKNOWN INDICATION
     Dosage: 100 MG, UID/QD
     Route: 065
  7. SYNTHROID [Concomitant]
     Indication: PRODUCT USED FOR UNKNOWN INDICATION
     Dosage: 112 UG, UID/QD
     Route: 065
  8. MULTI-VIT [Concomitant]
     Indication: PRODUCT USED FOR UNKNOWN INDICATION
     Dosage: 1 DF, UID/QD
     Route: 065
  9. PHAZYME                            /06269601/ [Concomitant]
     Indication: FLATULENCE
     Dosage: UNK
     Route: 065
  10. NEURONTIN [Concomitant]
     Indication: RESTLESS LEGS SYNDROME
     Dosage: UNK
     Route: 065
  11. PRAMIPEXOLE [Concomitant]
     Indication: RESTLESS LEGS SYNDROME
     Dosage: 0.125 MG, QHS
     Route: 065
  12. ROPINIROLE [Concomitant]
     Indication: RESTLESS LEGS SYNDROME
     Dosage: 1 MG, BID
     Route: 048
  13. SPIRONOLACTONE [Concomitant]
     Indication: OEDEMA PERIPHERAL
     Dosage: 25 MG, PRN
     Route: 065
  14. LUPRON [Concomitant]
     Indication: PROSTATE CANCER METASTATIC
     Dosage: UNK
     Route: 065

REACTIONS (26)
  - Drug ineffective [Unknown]
  - Mobility decreased [Unknown]
  - Fatigue [Unknown]
  - Metastases to bone [Unknown]
  - General physical health deterioration [Unknown]
  - Gait disturbance [Unknown]
  - Fall [Unknown]
  - Myoclonus [Recovering/Resolving]
  - Vision blurred [Unknown]
  - Mononeuritis [Unknown]
  - Renal disorder [Unknown]
  - Ureteral disorder [Unknown]
  - Sleep disorder [Unknown]
  - Ecchymosis [Unknown]
  - Myositis [Unknown]
  - Blister [Unknown]
  - Nocturia [Unknown]
  - Depression [Unknown]
  - Restless legs syndrome [Recovering/Resolving]
  - Weight decreased [Unknown]
  - Decreased appetite [Unknown]
  - Dizziness [Unknown]
  - Pollakiuria [Unknown]
  - Musculoskeletal pain [None]
  - Prostatic specific antigen increased [Unknown]
  - Myalgia [Unknown]
